FAERS Safety Report 18175489 (Version 3)
Quarter: 2020Q4

REPORT INFORMATION
  Report Type: Spontaneous
  Country: US (occurrence: US)
  Receive Date: 20200820
  Receipt Date: 20201223
  Transmission Date: 20210113
  Serious: Yes (Hospitalization, Other)
  Sender: FDA-Public Use
  Company Number: US-PFIZER INC-2020320179

PATIENT
  Age: 29 Year
  Sex: Female

DRUGS (9)
  1. BUSPAR [Suspect]
     Active Substance: BUSPIRONE HYDROCHLORIDE
     Indication: DEPRESSION
     Dosage: UNK (BEFORE LMP - DELIVERY), UNKNOWN)
     Dates: end: 20170828
  2. PROGESTERONE. [Suspect]
     Active Substance: PROGESTERONE
     Indication: FERTILITY INCREASED
     Dosage: UNK (BEFORE LMP -12 WEEKS PREGNANT), UNKNOWN)
  3. ABILIFY [Suspect]
     Active Substance: ARIPIPRAZOLE
     Indication: DEPRESSION
     Dosage: 5 MG (5MG UNK (BEFORE THE LMP TO DELIVERY), UNKNOWN)
     Dates: end: 20170828
  4. HUMALOG [Suspect]
     Active Substance: INSULIN LISPRO
     Indication: GESTATIONAL DIABETES
     Dosage: UNK (16 WEEKS -DELIVERY), UNKNOWN)
     Dates: end: 20170828
  5. REMERON [Suspect]
     Active Substance: MIRTAZAPINE
     Indication: DEPRESSION
     Dosage: UNK (BEFORE LMP - DELIVERY), UNKNOWN)
     Dates: end: 20170828
  6. HUMALIN [Suspect]
     Active Substance: INSULIN NOS
     Indication: GESTATIONAL DIABETES
     Dosage: UNK (16 WEEKS -DELIVERY), UNKNOWN)
     Dates: end: 20170828
  7. ESTRADIOL. [Suspect]
     Active Substance: ESTRADIOL
     Indication: FERTILITY INCREASED
     Dosage: UNK ((BEFORE LMP -12 WEEKS PREGNANT), UNKNOWN)
  8. LEVOTHYROXINE SODIUM. [Suspect]
     Active Substance: LEVOTHYROXINE SODIUM
     Indication: HYPOTHYROIDISM
     Dosage: UNK (BEFORE LMP - DELIVERY)
     Dates: end: 20170828
  9. PROZAC [Suspect]
     Active Substance: FLUOXETINE HYDROCHLORIDE
     Indication: DEPRESSION
     Dosage: UNK (BEFORE LMP - DELIVERY), UNKNOWN)
     Dates: end: 20170828

REACTIONS (5)
  - Maternal exposure during pregnancy [Unknown]
  - Premature labour [Recovered/Resolved]
  - Vaginal haemorrhage [Recovered/Resolved]
  - Gestational hypertension [Recovered/Resolved]
  - Gestational diabetes [Recovered/Resolved]
